FAERS Safety Report 16030149 (Version 7)
Quarter: 2019Q2

REPORT INFORMATION
  Report Type: Spontaneous
  Country: US (occurrence: US)
  Receive Date: 20190304
  Receipt Date: 20190619
  Transmission Date: 20190711
  Serious: Yes (Death, Hospitalization, Other)
  Sender: FDA-Public Use
  Company Number: US-GLAXOSMITHKLINE-US2019GSK038536

PATIENT
  Sex: Male

DRUGS (3)
  1. PREVACID [Suspect]
     Active Substance: LANSOPRAZOLE
     Indication: GASTROOESOPHAGEAL REFLUX DISEASE
     Dosage: 15 MG, QD
     Route: 065
  2. PANTOPRAZOLE [Suspect]
     Active Substance: PANTOPRAZOLE
     Indication: GASTROOESOPHAGEAL REFLUX DISEASE
     Dosage: 40 MG, QD
     Route: 065
  3. PANTOPRAZOLE [Suspect]
     Active Substance: PANTOPRAZOLE
     Dosage: 40 MG, BID
     Route: 048

REACTIONS (22)
  - End stage renal disease [Fatal]
  - Acute kidney injury [Unknown]
  - Glomerulonephritis [Unknown]
  - Blood creatinine increased [Unknown]
  - Acute respiratory failure [Fatal]
  - Calciphylaxis [Fatal]
  - Renal failure [Unknown]
  - Proteinuria [Unknown]
  - Nephropathy [Unknown]
  - Renal impairment [Unknown]
  - Azotaemia [Unknown]
  - Renal cyst [Unknown]
  - Dysuria [Unknown]
  - Nephrogenic anaemia [Unknown]
  - Chronic kidney disease [Unknown]
  - Diabetic nephropathy [Unknown]
  - Nephritis [Unknown]
  - Renal atrophy [Unknown]
  - Renal tubular necrosis [Unknown]
  - Renal mass [Unknown]
  - Nephrolithiasis [Unknown]
  - Peritoneal dialysis [Unknown]
